FAERS Safety Report 19720999 (Version 1)
Quarter: 2021Q3

REPORT INFORMATION
  Report Type: Spontaneous
  Country: BG (occurrence: BG)
  Receive Date: 20210819
  Receipt Date: 20210819
  Transmission Date: 20211014
  Serious: Yes (Hospitalization, Other)
  Sender: FDA-Public Use
  Company Number: BG-TEVA-2021-BG-1942209

PATIENT
  Age: 14 Year
  Sex: Female

DRUGS (1)
  1. CUPRENIL 250 MG [Suspect]
     Active Substance: PENICILLAMINE
     Indication: HEPATO-LENTICULAR DEGENERATION
     Dosage: 500 MILLIGRAM DAILY; BID:
     Route: 048
     Dates: start: 20200722, end: 20200726

REACTIONS (4)
  - Chest pain [Unknown]
  - Pruritus [Unknown]
  - Dyspnoea [Unknown]
  - Back pain [Unknown]
